FAERS Safety Report 21592625 (Version 1)
Quarter: 2022Q4

REPORT INFORMATION
  Report Type: Spontaneous
  Country: KR (occurrence: KR)
  Receive Date: 20221114
  Receipt Date: 20221114
  Transmission Date: 20230112
  Serious: Yes (Other)
  Sender: FDA-Public Use
  Company Number: KR-MYLANLABS-2022M1124688

PATIENT
  Age: 79 Year
  Sex: Male

DRUGS (3)
  1. LYRICA [Suspect]
     Active Substance: PREGABALIN
     Indication: Pain
     Dosage: 1 DOSAGE FORM, QD
     Route: 065
     Dates: start: 20190413, end: 20190413
  2. EPERISONE HYDROCHLORIDE [Suspect]
     Active Substance: EPERISONE HYDROCHLORIDE
     Indication: Pain
     Dosage: 1 DOSAGE FORM, QD
     Route: 065
     Dates: start: 20190413, end: 20190413
  3. ITOPRIDE HYDROCHLORIDE [Suspect]
     Active Substance: ITOPRIDE HYDROCHLORIDE
     Indication: Pain
     Dosage: 1 DOSAGE FORM, QD
     Route: 065
     Dates: start: 20190413, end: 20190413

REACTIONS (5)
  - Depressed level of consciousness [Recovered/Resolved]
  - Skin burning sensation [Recovered/Resolved]
  - Pruritus [Recovered/Resolved]
  - Hypotension [Recovered/Resolved]
  - Off label use [Unknown]

NARRATIVE: CASE EVENT DATE: 20190413
